FAERS Safety Report 18565502 (Version 1)
Quarter: 2020Q4

REPORT INFORMATION
  Report Type: Spontaneous
  Country: US (occurrence: US)
  Receive Date: 20201201
  Receipt Date: 20201201
  Transmission Date: 20210114
  Serious: No
  Sender: FDA-Public Use
  Company Number: None

PATIENT
  Age: 82 Year
  Sex: Male
  Weight: 74.75 kg

DRUGS (15)
  1. IBUPROFEN 200MG, ORAL [Concomitant]
  2. PRAVASTATIN SODIUM 20MG, ORAL [Concomitant]
  3. PREDNISONE 5MG, ORAL [Concomitant]
  4. LUPRON DEPOT 7.5MG, IM [Concomitant]
  5. SPIRONOLACTONE 25MG, ORAL [Concomitant]
  6. VENTOLIN HFA 108, INHALATION [Concomitant]
  7. ABIRATERONE. [Suspect]
     Active Substance: ABIRATERONE ACETATE
     Indication: PROSTATE CANCER
     Route: 048
     Dates: start: 20190906
  8. CASODEX 50MG, ORAL [Concomitant]
  9. CEPHALEXIN 500MG, ORAL [Concomitant]
  10. ENALAPRIL MALEATE 20MG, ORAL [Concomitant]
  11. FLOVENT HFA 110MCG/ACT, INHALATION [Concomitant]
  12. METOPROLOL TARTRATE 50MG, ORAL [Concomitant]
  13. AMLODIPINE BESYLATE 5MG, ORAL [Concomitant]
  14. RANITIDINE HCL 150MG, ORAL [Concomitant]
  15. TAMSULOSIN HCL 0.4MG, ORAL [Concomitant]

REACTIONS (1)
  - Weight increased [None]

NARRATIVE: CASE EVENT DATE: 20201201
